FAERS Safety Report 15970295 (Version 1)
Quarter: 2019Q1

REPORT INFORMATION
  Report Type: Spontaneous
  Country: ES (occurrence: ES)
  Receive Date: 20190215
  Receipt Date: 20190215
  Transmission Date: 20190418
  Serious: Yes (Hospitalization, Other)
  Sender: FDA-Public Use
  Company Number: ES-MYLANLABS-2019M1014027

PATIENT
  Age: 19 Year
  Sex: Male
  Weight: 55 kg

DRUGS (4)
  1. DEXAMETHASONE W/GENTAMICIN [Concomitant]
     Indication: ACNE CONGLOBATA
     Route: 061
  2. ISOTRETINOIN. [Suspect]
     Active Substance: ISOTRETINOIN
     Indication: ACNE CONGLOBATA
     Dosage: HALF OF THE PROPOSED WEIGHT-ADJUSTED DAILY DOSE
     Route: 048
  3. PREDNISONE. [Concomitant]
     Active Substance: PREDNISONE
     Indication: ACNE CONGLOBATA
     Route: 065
  4. ISOTRETINOIN. [Suspect]
     Active Substance: ISOTRETINOIN
     Dosage: FULL DOSE
     Route: 048

REACTIONS (2)
  - Quality of life decreased [Unknown]
  - Acne fulminans [Recovered/Resolved with Sequelae]
